FAERS Safety Report 18677673 (Version 1)
Quarter: 2020Q4

REPORT INFORMATION
  Report Type: Spontaneous
  Country: US (occurrence: US)
  Receive Date: 20201229
  Receipt Date: 20201229
  Transmission Date: 20210114
  Serious: Yes (Hospitalization)
  Sender: FDA-Public Use
  Company Number: US-TORRENT-00010590

PATIENT
  Age: 72 Year
  Sex: Female

DRUGS (4)
  1. LACTULOSE. [Suspect]
     Active Substance: LACTULOSE
     Indication: HEPATIC ENCEPHALOPATHY
     Dosage: UNKNOWN
  2. PREDNISONE. [Concomitant]
     Active Substance: PREDNISONE
     Indication: BILIARY TRACT DISORDER
     Dosage: UNKNOWN
  3. URSODEOXYCHOLIC ACID [Concomitant]
     Active Substance: URSODIOL
     Indication: BILIARY TRACT DISORDER
     Dosage: UNKNOWN
  4. RIFAXIMIN. [Suspect]
     Active Substance: RIFAXIMIN
     Indication: HEPATIC ENCEPHALOPATHY
     Dosage: UNKNOWN

REACTIONS (1)
  - Condition aggravated [Unknown]
